FAERS Safety Report 25362153 (Version 1)
Quarter: 2025Q2

REPORT INFORMATION
  Report Type: Spontaneous
  Country: US (occurrence: None)
  Receive Date: 20250524
  Receipt Date: 20250524
  Transmission Date: 20250716
  Serious: Yes (Disabling, Other)
  Sender: FDA-CTU
  Company Number: None

PATIENT
  Age: 36 Year
  Sex: Female

DRUGS (1)
  1. CETIRIZINE HYDROCHLORIDE [Suspect]
     Active Substance: CETIRIZINE HYDROCHLORIDE
     Indication: Urticaria

REACTIONS (3)
  - Pruritus [None]
  - Nerve injury [None]
  - Mental disorder [None]

NARRATIVE: CASE EVENT DATE: 20250524
